FAERS Safety Report 6160617-3 (Version None)
Quarter: 2009Q2

REPORT INFORMATION
  Report Type: 
  Country: None (occurrence: None)
  Receive Date: 20090420
  Receipt Date: 20090415
  Transmission Date: 20091009
  Serious: Yes (Hospitalization)
  Sender: FDA-Public Use
  Company Number: FR-BRISTOL-MYERS SQUIBB COMPANY-14589931

PATIENT
  Age: 25 Year
  Sex: Male

DRUGS (3)
  1. REYATAZ [Suspect]
     Indication: ANTIRETROVIRAL THERAPY
     Dates: start: 20090214
  2. NORVIR [Interacting]
     Indication: ANTIRETROVIRAL THERAPY
     Dates: start: 20090214, end: 20090402
  3. ENTOCORT EC [Interacting]
     Indication: CROHN'S DISEASE
     Dates: start: 20081027

REACTIONS (2)
  - CUSHING'S SYNDROME [None]
  - DRUG INTERACTION [None]
